FAERS Safety Report 6998103-0 (Version None)
Quarter: 2010Q3

REPORT INFORMATION
  Report Type: 
  Country: None (occurrence: None)
  Receive Date: 20100920
  Receipt Date: 20091008
  Transmission Date: 20110219
  Serious: No
  Sender: FDA-Public Use
  Company Number: US-ASTRAZENECA-2009UW11454

PATIENT
  Age: 51 Year
  Sex: Female
  Weight: 97.5 kg

DRUGS (2)
  1. SEROQUEL [Suspect]
     Indication: INSOMNIA
     Route: 048
     Dates: start: 20000101, end: 20090701
  2. ZYPREXA [Concomitant]
     Dates: start: 19980101, end: 20000101

REACTIONS (7)
  - ADVERSE DRUG REACTION [None]
  - ARTHRITIS [None]
  - ASTHMA [None]
  - LIMB INJURY [None]
  - REPRODUCTIVE TRACT DISORDER [None]
  - TYPE 2 DIABETES MELLITUS [None]
  - UPPER RESPIRATORY TRACT INFECTION [None]
